FAERS Safety Report 4779366-9 (Version None)
Quarter: 2005Q3

REPORT INFORMATION
  Report Type: 
  Country: None (occurrence: None)
  Receive Date: 20050927
  Receipt Date: 20050825
  Transmission Date: 20060218
  Serious: Yes (Other)
  Sender: FDA-Public Use
  Company Number: JP-RB-2003-2005

PATIENT
  Sex: Male

DRUGS (8)
  1. BUPRENORPHINE HCL [Suspect]
     Indication: DRUG USE FOR UNKNOWN INDICATION
     Route: 054
     Dates: start: 20050813, end: 20050813
  2. NAFTOPIDIL [Concomitant]
     Indication: BENIGN PROSTATIC HYPERPLASIA
     Route: 048
     Dates: start: 20050721
  3. TAMSULOSIN HYDROCHLORIDE [Concomitant]
     Indication: BENIGN PROSTATIC HYPERPLASIA
     Route: 048
     Dates: start: 20050721
  4. NITROGLYCERIN [Concomitant]
     Indication: DRUG USE FOR UNKNOWN INDICATION
     Dosage: 1 SHEET
     Route: 062
     Dates: start: 20050721
  5. BACLOFEN [Concomitant]
     Indication: MUSCLE SPASMS
     Route: 048
     Dates: start: 20050727
  6. TRAZODONE HCL [Concomitant]
     Indication: INSOMNIA
     Route: 048
     Dates: start: 20050804
  7. MELOXICAM [Concomitant]
     Indication: SEDATION
     Route: 048
     Dates: start: 20050804
  8. CEVIMELINE HYDROCHLORIDE [Concomitant]
     Indication: THIRST
     Route: 048
     Dates: start: 20050805

REACTIONS (2)
  - HEART RATE DECREASED [None]
  - SHOCK [None]
